FAERS Safety Report 9681399 (Version 1)
Quarter: 2013Q4

REPORT INFORMATION
  Report Type: Spontaneous
  Country: IT (occurrence: IT)
  Receive Date: 20131111
  Receipt Date: 20131111
  Transmission Date: 20140711
  Serious: Yes (Other)
  Sender: FDA-Public Use
  Company Number: IT-ELI_LILLY_AND_COMPANY-IT201311000620

PATIENT
  Age: 77 Year
  Sex: Female

DRUGS (6)
  1. FORSTEO [Suspect]
     Indication: SPINAL FRACTURE
     Dosage: 20 UG, QD
     Route: 058
     Dates: start: 20130602
  2. METOPROLOL [Concomitant]
     Dosage: 150 MG, UNK
  3. TAPENTADOL [Concomitant]
     Dosage: 150 MG, UNK
  4. TOLEP [Concomitant]
     Dosage: 450 MG, UNK
  5. NORVASC [Concomitant]
     Dosage: 10 MG, UNK
  6. LOSAZID [Concomitant]
     Dosage: 125 MG, UNK

REACTIONS (5)
  - Pemphigoid [Unknown]
  - Face oedema [Recovered/Resolved]
  - Eyelid oedema [Recovered/Resolved]
  - Lip oedema [Recovered/Resolved]
  - Off label use [Unknown]
